FAERS Safety Report 21438197 (Version 1)
Quarter: 2022Q4

REPORT INFORMATION
  Report Type: Spontaneous
  Country: MY (occurrence: MY)
  Receive Date: 20221011
  Receipt Date: 20221011
  Transmission Date: 20230113
  Serious: Yes (Other)
  Sender: FDA-Public Use
  Company Number: MY-AMGEN-MYSSP2022172420

PATIENT
  Age: 67 Year
  Sex: Male

DRUGS (1)
  1. LUMAKRAS [Suspect]
     Active Substance: SOTORASIB
     Indication: Lung neoplasm malignant
     Dosage: UNK UNK, QD ( 8 TABLETS)
     Route: 048
     Dates: start: 202207

REACTIONS (2)
  - Lung neoplasm malignant [Unknown]
  - Product use in unapproved therapeutic environment [Unknown]
